FAERS Safety Report 8924985 (Version 1)
Quarter: 2012Q4

REPORT INFORMATION
  Report Type: 
  Country: FR (occurrence: FR)
  Receive Date: 20121126
  Receipt Date: 20121126
  Transmission Date: 20130627
  Serious: Yes (Death, Hospitalization, Other)
  Sender: FDA-Public Use
  Company Number: FR-ELI_LILLY_AND_COMPANY-FR201211005275

PATIENT
  Sex: Male

DRUGS (5)
  1. ALIMTA [Suspect]
     Dosage: UNK
     Dates: start: 20120926
  2. ALIMTA [Suspect]
     Dosage: UNK
     Dates: start: 20121017
  3. CISPLATIN [Concomitant]
     Dosage: UNK
     Dates: start: 20120926
  4. CISPLATIN [Concomitant]
     Dosage: UNK
     Dates: start: 20121017
  5. AVASTIN [Concomitant]

REACTIONS (7)
  - Death [Fatal]
  - Diarrhoea [Unknown]
  - Renal failure acute [Recovered/Resolved]
  - Hypokalaemia [Unknown]
  - Nausea [Unknown]
  - Vomiting [Unknown]
  - Pain [Unknown]
